FAERS Safety Report 21923061 (Version 1)
Quarter: 2023Q1

REPORT INFORMATION
  Report Type: Report from Study
  Country: BR (occurrence: BR)
  Receive Date: 20230129
  Receipt Date: 20230129
  Transmission Date: 20230417
  Serious: Yes (Other)
  Sender: FDA-Public Use
  Company Number: BR-JNJFOC-20230145812

PATIENT
  Age: 6 Decade
  Sex: Female
  Weight: 62 kg

DRUGS (2)
  1. REMICADE [Suspect]
     Active Substance: INFLIXIMAB
     Indication: Ankylosing spondylitis
     Route: 041
     Dates: start: 20210909
  2. INFLIXIMAB [Suspect]
     Active Substance: INFLIXIMAB
     Indication: Ankylosing spondylitis
     Route: 065

REACTIONS (10)
  - Cataract [Unknown]
  - Ankylosing spondylitis [Unknown]
  - Infusion related reaction [Recovered/Resolved]
  - Dry mouth [Recovered/Resolved]
  - Dysgeusia [Recovered/Resolved]
  - Gastritis [Recovered/Resolved]
  - Visual impairment [Unknown]
  - Influenza [Unknown]
  - Dizziness [Recovered/Resolved]
  - Diarrhoea [Unknown]
